FAERS Safety Report 9349186 (Version 1)
Quarter: 2013Q2

REPORT INFORMATION
  Report Type: Spontaneous
  Country: US (occurrence: US)
  Receive Date: 20130614
  Receipt Date: 20130614
  Transmission Date: 20140414
  Serious: No
  Sender: FDA-Public Use
  Company Number: US-SUCAMPO PHARMA AMERICAS, INC-SPI201300409

PATIENT
  Age: 52 Year
  Sex: Female
  Weight: 51.7 kg

DRUGS (11)
  1. AMITIZA [Suspect]
     Indication: IRRITABLE BOWEL SYNDROME
     Dosage: 24 MCG, BID
     Route: 048
     Dates: start: 2007, end: 201306
  2. UNKNOWN MEDICATION [Concomitant]
     Indication: CONVULSION
     Dosage: UNK
     Route: 048
  3. NEXIUM [Concomitant]
     Indication: GASTROOESOPHAGEAL REFLUX DISEASE
     Dosage: UNK
     Route: 048
  4. UNKNOWN MEDICATION [Concomitant]
     Indication: ASTHMA
     Dosage: UNK
     Route: 048
  5. KLONOPIN [Concomitant]
     Dosage: UNK
  6. LEXAPRO [Concomitant]
     Dosage: UNK
  7. NASONEX [Concomitant]
     Dosage: UNK
  8. ALBUTEROL [Concomitant]
     Dosage: UNK, PRN
  9. ESTROGENON [Concomitant]
     Dosage: UNK
  10. VITAMIN B12 [Concomitant]
     Dosage: UNK
  11. VITAMIN D3 [Concomitant]
     Dosage: 50000 IU, UNK

REACTIONS (8)
  - Product formulation issue [None]
  - Pharyngeal oedema [Recovered/Resolved]
  - Dysphonia [Recovered/Resolved]
  - Feeling abnormal [Recovered/Resolved]
  - Swelling face [Recovered/Resolved]
  - Rash [Recovered/Resolved]
  - Dyspnoea [Recovered/Resolved]
  - Headache [Recovered/Resolved]
